FAERS Safety Report 7812244-7 (Version None)
Quarter: 2011Q4

REPORT INFORMATION
  Report Type: 
  Country: None (occurrence: None)
  Receive Date: 20111013
  Receipt Date: 20111007
  Transmission Date: 20120403
  Serious: Yes (Death)
  Sender: FDA-Public Use
  Company Number: IT-CELGENEUS-083-50794-11090347

PATIENT

DRUGS (1)
  1. VIDAZA [Suspect]
     Dosage: 130 MILLIGRAM
     Route: 058
     Dates: end: 20110712

REACTIONS (3)
  - SUDDEN DEATH [None]
  - NO THERAPEUTIC RESPONSE [None]
  - ACUTE MYELOID LEUKAEMIA [None]
